FAERS Safety Report 6566295-3 (Version None)
Quarter: 2010Q1

REPORT INFORMATION
  Report Type: 
  Country: None (occurrence: None)
  Receive Date: 20100202
  Receipt Date: 20100121
  Transmission Date: 20100710
  Serious: Yes (Life-Threatening, Hospitalization)
  Sender: FDA-Public Use
  Company Number: DE-PFIZER INC-2010012433

PATIENT
  Age: 61 Year
  Sex: Male

DRUGS (11)
  1. SPIRONOLACTONE [Suspect]
     Dosage: 25 MG, 1X/DAY
     Route: 048
     Dates: end: 20090905
  2. OLMETEC [Suspect]
     Dosage: UNK
     Route: 048
     Dates: end: 20090905
  3. OLMETEC [Suspect]
     Dosage: 10 MG, 1X/DAY
     Route: 048
     Dates: start: 20090910
  4. OLMETEC [Suspect]
     Dosage: 20-0-10 MG, 2X/DAY
     Route: 048
     Dates: start: 20091112
  5. DIURAPID [Suspect]
     Indication: HYPERTENSION
     Dosage: 40 MG, 1X/DAY
     Route: 048
     Dates: end: 20090905
  6. DIURAPID [Suspect]
     Dosage: 20 MG, 1X/DAY
     Route: 048
     Dates: start: 20090914
  7. ENALAPRIL MALEATE [Suspect]
     Indication: HYPERTENSION
     Dosage: UNK
     Route: 048
     Dates: end: 20090905
  8. ENALAPRIL MALEATE [Suspect]
     Dosage: 2.5 MG, 1X/DAY
     Route: 048
     Dates: start: 20090909
  9. MEGLUCON [Suspect]
     Indication: TYPE 2 DIABETES MELLITUS
     Dosage: UNK
     Route: 048
     Dates: start: 20050101, end: 20090905
  10. HUMALOG [Concomitant]
     Indication: TYPE 2 DIABETES MELLITUS
     Dosage: UNK
     Route: 058
  11. MOXONIDINE [Concomitant]
     Indication: HYPERTENSION
     Dosage: UNK, 1X/DAY
     Route: 048
     Dates: end: 20090905

REACTIONS (2)
  - ACUTE PRERENAL FAILURE [None]
  - LACTIC ACIDOSIS [None]
